FAERS Safety Report 11912927 (Version 1)
Quarter: 2016Q1

REPORT INFORMATION
  Report Type: Spontaneous
  Country: US (occurrence: None)
  Receive Date: 20160112
  Receipt Date: 20160112
  Transmission Date: 20160526
  Serious: No
  Sender: FDA-Public Use
  Company Number: None

PATIENT
  Age: 29 Year
  Sex: Female
  Weight: 56.7 kg

DRUGS (1)
  1. TORADOL [Suspect]
     Active Substance: KETOROLAC TROMETHAMINE
     Indication: PELVIC PAIN
     Route: 030
     Dates: start: 20151228, end: 20151228

REACTIONS (2)
  - Injection site pain [None]
  - Musculoskeletal pain [None]

NARRATIVE: CASE EVENT DATE: 20151228
